FAERS Safety Report 9468008 (Version 2)
Quarter: 2013Q4

REPORT INFORMATION
  Report Type: Spontaneous
  Country: IT (occurrence: IT)
  Receive Date: 20130821
  Receipt Date: 20131105
  Transmission Date: 20140711
  Serious: Yes (Hospitalization)
  Sender: FDA-Public Use
  Company Number: IT-SANOFI-AVENTIS-2013SA081813

PATIENT
  Age: 75 Year
  Sex: Male
  Weight: 67 kg

DRUGS (4)
  1. TAXOTERE [Suspect]
     Indication: LUNG SQUAMOUS CELL CARCINOMA STAGE IV
     Route: 041
     Dates: start: 20130711, end: 20130805
  2. CORTICOSTEROID NOS [Concomitant]
     Indication: PREMEDICATION
  3. ANTIHISTAMINES [Concomitant]
     Indication: PREMEDICATION
     Route: 030
     Dates: start: 20130805, end: 20130805
  4. IRON [Concomitant]
     Route: 048

REACTIONS (3)
  - Oxygen saturation decreased [Recovered/Resolved]
  - Incontinence [Recovered/Resolved]
  - Hypotension [Recovered/Resolved]
